FAERS Safety Report 4647940-6 (Version None)
Quarter: 2005Q2

REPORT INFORMATION
  Report Type: 
  Country: None (occurrence: None)
  Receive Date: 20050428
  Receipt Date: 20041223
  Transmission Date: 20051028
  Serious: Yes (Other)
  Sender: FDA-Public Use
  Company Number: DK-ABBOTT-04P-044-0284538-00

PATIENT
  Sex: Female
  Weight: 60 kg

DRUGS (10)
  1. HUMIRA [Suspect]
     Indication: RHEUMATOID ARTHRITIS
     Route: 058
     Dates: start: 20040616, end: 20041017
  2. HUMIRA [Suspect]
     Route: 058
     Dates: start: 20041119
  3. HUMIRA [Suspect]
  4. METOJECT [Interacting]
     Indication: RHEUMATOID ARTHRITIS
     Route: 058
     Dates: start: 20030423, end: 20041019
  5. METOJECT [Interacting]
     Route: 058
     Dates: start: 20041119
  6. FOLIC ACID [Concomitant]
     Indication: VITAMIN SUPPLEMENTATION
     Dates: start: 19990626
  7. FOLIC ACID [Concomitant]
  8. DICLOFENAC SODIUM [Concomitant]
     Indication: PAIN
     Dates: start: 19970415, end: 20041111
  9. ACETAMINOPHEN [Concomitant]
     Indication: PAIN
     Dates: start: 20040212
  10. PREDNISOLONE [Concomitant]
     Indication: DRUG USE FOR UNKNOWN INDICATION
     Dates: start: 20040212

REACTIONS (3)
  - ABORTION SPONTANEOUS [None]
  - DRUG EXPOSURE DURING PREGNANCY [None]
  - DRUG INTERACTION [None]
